FAERS Safety Report 15917856 (Version 1)
Quarter: 2019Q1

REPORT INFORMATION
  Report Type: Spontaneous
  Country: FR (occurrence: FR)
  Receive Date: 20190205
  Receipt Date: 20190205
  Transmission Date: 20190417
  Serious: Yes (Hospitalization)
  Sender: FDA-Public Use
  Company Number: FR-ROCHE-2254722

PATIENT
  Age: 55 Year
  Sex: Male
  Weight: 68 kg

DRUGS (5)
  1. NOZINAN [Suspect]
     Active Substance: LEVOMEPROMAZINE
     Indication: PSYCHOTIC DISORDER
     Dosage: UNIT DOSE: 150 [DRP]
     Route: 048
     Dates: start: 20171202, end: 20171210
  2. CLOMIPRAMINE [Suspect]
     Active Substance: CLOMIPRAMINE
     Indication: PSYCHOTIC DISORDER
     Route: 048
     Dates: start: 20171202, end: 20171210
  3. HALDOL [Suspect]
     Active Substance: HALOPERIDOL
     Indication: PSYCHOTIC DISORDER
     Route: 048
     Dates: start: 20171202, end: 20171210
  4. VALIUM [Suspect]
     Active Substance: DIAZEPAM
     Indication: PSYCHOTIC DISORDER
     Route: 048
     Dates: start: 20171202, end: 20171210
  5. HAVLANE [Suspect]
     Active Substance: LOPRAZOLAM
     Indication: PSYCHOTIC DISORDER
     Route: 048
     Dates: start: 20171202, end: 20171210

REACTIONS (4)
  - Pyrexia [Recovered/Resolved]
  - Dystonia [Recovered/Resolved]
  - Rhabdomyolysis [Recovered/Resolved]
  - Confusional state [Recovered/Resolved]

NARRATIVE: CASE EVENT DATE: 20171210
